FAERS Safety Report 9567177 (Version 1)
Quarter: 2013Q3

REPORT INFORMATION
  Report Type: Spontaneous
  Country: US (occurrence: US)
  Receive Date: 20130930
  Receipt Date: 20130930
  Transmission Date: 20140515
  Serious: No
  Sender: FDA-Public Use
  Company Number: US-AMGEN-USASP2012062338

PATIENT
  Sex: Female

DRUGS (13)
  1. ENBREL [Suspect]
     Indication: RHEUMATOID ARTHRITIS
     Dosage: 50 MG, QWK
     Route: 058
  2. FOLIC ACID [Concomitant]
     Dosage: UNK
  3. BENADRYL                           /00000402/ [Concomitant]
     Dosage: 25 MG, UNK
  4. IRON [Concomitant]
     Dosage: 18 MG, UNK
  5. IBUPROFEN [Concomitant]
     Dosage: 200 MG, UNK
  6. REPLESTA [Concomitant]
     Dosage: 50000 UNIT, UNK
  7. PLAQUENIL                          /00072602/ [Concomitant]
     Dosage: 200 MG, UNK
  8. METHOTREXATE [Concomitant]
     Dosage: 2.5 MG, UNK
  9. RESTASIS [Concomitant]
     Dosage: UNK 0.5%
  10. AMBIEN [Concomitant]
     Dosage: 6.25 MG, UNK
  11. VALACYCLOVIR HYDROCHLORIDE [Concomitant]
     Dosage: 500 MG, UNK
  12. MECLIZINE                          /00072801/ [Concomitant]
     Dosage: 12.5 MG, UNK
  13. ALEVE [Concomitant]
     Dosage: UNK

REACTIONS (8)
  - Migraine [Unknown]
  - Visual impairment [Unknown]
  - Impaired driving ability [Unknown]
  - Injection site mass [Unknown]
  - Injection site reaction [Unknown]
  - Upper respiratory tract infection [Unknown]
  - Injection site erythema [Unknown]
  - Injection site induration [Unknown]
